FAERS Safety Report 10003964 (Version 2)
Quarter: 2014Q1

REPORT INFORMATION
  Report Type: Spontaneous
  Country: US (occurrence: US)
  Receive Date: 20140312
  Receipt Date: 20140312
  Transmission Date: 20141002
  Serious: No
  Sender: FDA-Public Use
  Company Number: US-ABBVIE-13P-163-1184460-00

PATIENT
  Sex: Female

DRUGS (4)
  1. DEPAKOTE [Suspect]
     Indication: PRODUCT USED FOR UNKNOWN INDICATION
  2. LATUDA [Suspect]
     Indication: SCHIZOPHRENIA
     Route: 048
     Dates: start: 2013, end: 2013
  3. LATUDA [Suspect]
     Route: 048
     Dates: start: 2013, end: 201311
  4. LATUDA [Suspect]
     Route: 048
     Dates: start: 201311

REACTIONS (1)
  - Neutrophil count decreased [Recovered/Resolved]
